FAERS Safety Report 4282030-6 (Version None)
Quarter: 2004Q1

REPORT INFORMATION
  Report Type: 
  Country: None (occurrence: None)
  Receive Date: 20040128
  Receipt Date: 20040115
  Transmission Date: 20041129
  Serious: Yes (Hospitalization)
  Sender: FDA-Public Use
  Company Number: HQWYE915929DEC03

PATIENT
  Age: 30 Year
  Sex: Female

DRUGS (2)
  1. ADVIL [Suspect]
     Indication: INFLUENZA
     Dosage: 1200 MG DAILY
     Route: 048
     Dates: start: 20031101, end: 20031201
  2. ADVIL [Suspect]
     Indication: TOOTHACHE
     Dosage: 1200 MG DAILY
     Route: 048
     Dates: start: 20031101, end: 20031201

REACTIONS (9)
  - ANOREXIA [None]
  - BLOOD BILIRUBIN INCREASED [None]
  - BLOOD SODIUM DECREASED [None]
  - BLOOD UREA DECREASED [None]
  - DIARRHOEA [None]
  - HEPATITIS ALCOHOLIC [None]
  - HEPATOMEGALY [None]
  - OEDEMA PERIPHERAL [None]
  - WEIGHT DECREASED [None]
